FAERS Safety Report 10335001 (Version 4)
Quarter: 2015Q1

REPORT INFORMATION
  Report Type: Spontaneous
  Country: US (occurrence: US)
  Receive Date: 20140723
  Receipt Date: 20150325
  Transmission Date: 20150720
  Serious: Yes (Hospitalization, Other)
  Sender: FDA-Public Use
  Company Number: US-BAYER-2014-107320

PATIENT
  Age: 24 Year
  Sex: Female

DRUGS (1)
  1. MIRENA [Suspect]
     Active Substance: LEVONORGESTREL
     Indication: CONTRACEPTION
     Dosage: 30 MCG/24HR, CONT
     Route: 015
     Dates: start: 20090924, end: 20140625

REACTIONS (19)
  - Necrosis [None]
  - Wound dehiscence [None]
  - Migraine [None]
  - Seroma [None]
  - Injury [None]
  - Pain [None]
  - Device issue [None]
  - Haematoma [None]
  - Depression [None]
  - Device breakage [None]
  - Uterine perforation [None]
  - Genital haemorrhage [None]
  - Emotional distress [None]
  - Anhedonia [None]
  - Device dislocation [None]
  - Complication of device removal [None]
  - Wound infection [None]
  - Infertility female [None]
  - Anxiety [None]

NARRATIVE: CASE EVENT DATE: 20100908
